FAERS Safety Report 23396706 (Version 1)
Quarter: 2024Q1

REPORT INFORMATION
  Report Type: Report from Study
  Country: US (occurrence: US)
  Receive Date: 20240112
  Receipt Date: 20240112
  Transmission Date: 20240410
  Serious: Yes (Hospitalization)
  Sender: FDA-Public Use
  Company Number: US-JNJFOC-20231131997

PATIENT
  Age: 46 Year
  Sex: Male
  Weight: 96.4 kg

DRUGS (2)
  1. EPOPROSTENOL SODIUM [Suspect]
     Active Substance: EPOPROSTENOL SODIUM
     Indication: Pulmonary hypertension
     Route: 042
  2. TADALAFIL [Concomitant]
     Active Substance: TADALAFIL

REACTIONS (7)
  - Device occlusion [Unknown]
  - COVID-19 [Unknown]
  - High frequency ablation [Unknown]
  - Procedural complication [Unknown]
  - Complication associated with device [Unknown]
  - Device issue [Unknown]
  - Underdose [Unknown]

NARRATIVE: CASE EVENT DATE: 20231108
